FAERS Safety Report 9120171 (Version 1)
Quarter: 2013Q1

REPORT INFORMATION
  Report Type: Spontaneous
  Country: US (occurrence: US)
  Receive Date: 20130226
  Receipt Date: 20130226
  Transmission Date: 20140127
  Serious: Yes (Other)
  Sender: FDA-Public Use
  Company Number: US-JNJFOC-20130210312

PATIENT
  Sex: Male

DRUGS (1)
  1. TYLENOL COLD AND FLU SEVERE WITH HONEY LEMON WARMING [Suspect]
     Indication: PRODUCT USED FOR UNKNOWN INDICATION
     Dosage: 1 CAPFUL ONCE
     Route: 048

REACTIONS (1)
  - Blood glucose increased [Recovered/Resolved]
